FAERS Safety Report 8523348-8 (Version None)
Quarter: 2012Q3

REPORT INFORMATION
  Report Type: 
  Country: None (occurrence: None)
  Receive Date: 20120709
  Receipt Date: 20120628
  Transmission Date: 20120928
  Serious: Yes (Other)
  Sender: FDA-Public Use
  Company Number: MPS1-1000725

PATIENT
  Age: 27 Year
  Sex: Male

DRUGS (7)
  1. ACETAMINOPHEN [Concomitant]
  2. DIPHENHYDRAMINE HCL [Concomitant]
  3. DIURETICS [Concomitant]
  4. ALDURAZYME [Suspect]
     Indication: MUCOPOLYSACCHARIDOSIS I
     Dosage: 7 VIALS, Q2W, INTRAVENOUS
     Route: 042
     Dates: end: 20111001
  5. ALDURAZYME [Suspect]
     Indication: MUCOPOLYSACCHARIDOSIS I
     Dosage: 7 VIALS, Q2W, INTRAVENOUS
     Route: 042
     Dates: start: 20120601
  6. SPIRONOLACTONE [Concomitant]
  7. DIGOXIN [Concomitant]

REACTIONS (3)
  - GRAND MAL CONVULSION [None]
  - BLOOD PRESSURE DECREASED [None]
  - APNOEA [None]
